FAERS Safety Report 18564602 (Version 1)
Quarter: 2020Q4

REPORT INFORMATION
  Report Type: Spontaneous
  Country: BR (occurrence: BR)
  Receive Date: 20201201
  Receipt Date: 20201201
  Transmission Date: 20210114
  Serious: Yes (Other)
  Sender: FDA-Public Use
  Company Number: NVSC2020BR318312

PATIENT
  Age: 60 Year
  Sex: Female

DRUGS (4)
  1. EVEROLIMUS. [Suspect]
     Active Substance: EVEROLIMUS
     Indication: HER2 POSITIVE BREAST CANCER
     Dosage: 10 MG
     Route: 065
     Dates: start: 201711
  2. EXEMESTANE. [Suspect]
     Active Substance: EXEMESTANE
     Indication: BREAST CANCER METASTATIC
     Dosage: 25 MG
     Route: 065
     Dates: start: 201711
  3. CAPECITABINE. [Suspect]
     Active Substance: CAPECITABINE
     Indication: PRODUCT USED FOR UNKNOWN INDICATION
     Dosage: UNK
     Route: 065
     Dates: start: 201902
  4. DENOSUMAB [Suspect]
     Active Substance: DENOSUMAB
     Indication: PRODUCT USED FOR UNKNOWN INDICATION
     Dosage: 120 MG
     Route: 065
     Dates: start: 201902

REACTIONS (5)
  - Bone lesion [Unknown]
  - Metastases to bone [Unknown]
  - Pulmonary necrosis [Unknown]
  - Pulmonary embolism [Unknown]
  - Pulmonary mass [Unknown]

NARRATIVE: CASE EVENT DATE: 201901
